FAERS Safety Report 17227171 (Version 1)
Quarter: 2020Q1

REPORT INFORMATION
  Report Type: Spontaneous
  Country: FR (occurrence: FR)
  Receive Date: 20200103
  Receipt Date: 20200103
  Transmission Date: 20200409
  Serious: Yes (Hospitalization, Other)
  Sender: FDA-Public Use
  Company Number: FR-AUROBINDO-AUR-APL-2019-107761

PATIENT
  Age: 88 Year
  Sex: Male

DRUGS (6)
  1. SERESTA [Concomitant]
     Active Substance: OXAZEPAM
     Indication: DEPRESSION
     Dosage: 30 MILLIGRAM, ONCE A DAY
     Route: 048
  2. PERINDOPRIL [Suspect]
     Active Substance: PERINDOPRIL
     Indication: HYPERTENSION
     Dosage: 4 MILLIGRAM, ONCE A DAY
     Route: 048
     Dates: end: 20191122
  3. VORTIOXETINE HYDROBROMIDE [Concomitant]
     Active Substance: VORTIOXETINE HYDROBROMIDE
     Indication: DEPRESSION
     Dosage: 10 MILLIGRAM, ONCE A DAY
     Route: 048
     Dates: end: 20191125
  4. FINASTERIDE. [Concomitant]
     Active Substance: FINASTERIDE
     Indication: BENIGN PROSTATIC HYPERPLASIA
     Dosage: 5 MILLIGRAM, ONCE A DAY
     Route: 048
  5. ALFUZOSIN HYDROCHLORIDE. [Interacting]
     Active Substance: ALFUZOSIN HYDROCHLORIDE
     Indication: BENIGN PROSTATIC HYPERPLASIA
     Dosage: 10 MILLIGRAM, ONCE A DAY
     Route: 048
     Dates: end: 20191122
  6. TIAPRIDAL [Concomitant]
     Active Substance: TIAPRIDE HYDROCHLORIDE
     Indication: DEPRESSION
     Dosage: 15 MILLIGRAM, ONCE A DAY
     Route: 048

REACTIONS (3)
  - Acute kidney injury [Recovering/Resolving]
  - Hypotension [Recovered/Resolved]
  - Hypovolaemic shock [Recovered/Resolved]

NARRATIVE: CASE EVENT DATE: 20191122
